FAERS Safety Report 5135155-7 (Version None)
Quarter: 2006Q4

REPORT INFORMATION
  Report Type: 
  Country: None (occurrence: None)
  Receive Date: 20060831
  Receipt Date: 20050728
  Transmission Date: 20070319
  Serious: Yes (Other)
  Sender: FDA-Public Use
  Company Number: 2005108501

PATIENT
  Sex: Female

DRUGS (1)
  1. DETROL [Suspect]
     Indication: ILL-DEFINED DISORDER
     Dosage: UNKNOWN, (UNKNOWN), UNKNOWN
     Dates: start: 20050101

REACTIONS (1)
  - URINARY RETENTION [None]
